FAERS Safety Report 17316737 (Version 1)
Quarter: 2020Q1

REPORT INFORMATION
  Report Type: Spontaneous
  Country: CA (occurrence: CA)
  Receive Date: 20200124
  Receipt Date: 20200124
  Transmission Date: 20200409
  Serious: Yes (Hospitalization, Other)
  Sender: FDA-Public Use
  Company Number: CA-009507513-2001CAN007536

PATIENT
  Age: 73 Year
  Sex: Female
  Weight: 58.96 kg

DRUGS (1)
  1. FOSAVANCE [Suspect]
     Active Substance: ALENDRONATE SODIUM\CHOLECALCIFEROL
     Indication: OSTEOPOROSIS
     Dosage: 70 MILLIGRAM, 1 EVERY 1 DAY
     Route: 048

REACTIONS (4)
  - Magnetic resonance imaging [Recovering/Resolving]
  - Physiotherapy [Recovering/Resolving]
  - Pain in extremity [Recovering/Resolving]
  - Bone operation [Recovering/Resolving]
